FAERS Safety Report 23261547 (Version 1)
Quarter: 2023Q4

REPORT INFORMATION
  Report Type: Report from Study
  Country: US (occurrence: US)
  Receive Date: 20231205
  Receipt Date: 20231205
  Transmission Date: 20240110
  Serious: Yes (Other)
  Sender: FDA-Public Use
  Company Number: US-EXELIXIS-CABO-23071053

PATIENT
  Sex: Male
  Weight: 73.832 kg

DRUGS (9)
  1. CABOMETYX [Suspect]
     Active Substance: CABOZANTINIB S-MALATE
     Indication: Renal cell carcinoma
     Dosage: 20 MG, QD
     Route: 048
     Dates: start: 20231021
  2. ASPIRIN [Concomitant]
     Active Substance: ASPIRIN
  3. KEYTRUDA [Concomitant]
     Active Substance: PEMBROLIZUMAB
  4. MEGESTROL [Concomitant]
     Active Substance: MEGESTROL
  5. MIRTAZAPINE [Concomitant]
     Active Substance: MIRTAZAPINE
  6. NEXIUM [Concomitant]
     Active Substance: ESOMEPRAZOLE MAGNESIUM
  7. NORCO [Concomitant]
     Active Substance: ACETAMINOPHEN\HYDROCODONE BITARTRATE
  8. PREDNISONE [Concomitant]
     Active Substance: PREDNISONE
  9. VITAMINS [Concomitant]
     Active Substance: VITAMINS

REACTIONS (3)
  - Coronary artery disease [Not Recovered/Not Resolved]
  - Thrombosis [Not Recovered/Not Resolved]
  - Cardiac dysfunction [Not Recovered/Not Resolved]
